FAERS Safety Report 9116851 (Version 3)
Quarter: 2015Q1

REPORT INFORMATION
  Report Type: Report from Study
  Country: CA (occurrence: CA)
  Receive Date: 20130225
  Receipt Date: 20150209
  Transmission Date: 20150721
  Serious: Yes (Hospitalization)
  Sender: FDA-Public Use
  Company Number: PHHY2013CA010870

PATIENT
  Age: 53 Year
  Sex: Male

DRUGS (2)
  1. SANDOSTATIN LAR DEPOT [Suspect]
     Active Substance: OCTREOTIDE ACETATE
     Indication: ACRAL OVERGROWTH
     Dosage: 30 MG, QMO (ONCE A MONTH)
     Route: 030
     Dates: start: 20130328
  2. SANDOSTATIN [Suspect]
     Active Substance: OCTREOTIDE ACETATE
     Indication: ACRAL OVERGROWTH
     Dosage: 100 UG, TID
     Route: 058
     Dates: start: 20121215

REACTIONS (8)
  - Cerebrospinal fluid leakage [Unknown]
  - Blood prolactin abnormal [Unknown]
  - Hormone level abnormal [Unknown]
  - Nausea [Unknown]
  - Abdominal pain upper [Unknown]
  - Memory impairment [Unknown]
  - Diabetes mellitus [Unknown]
  - Brain neoplasm [Unknown]

NARRATIVE: CASE EVENT DATE: 201302
